FAERS Safety Report 8801481 (Version 2)
Quarter: 2012Q4

REPORT INFORMATION
  Report Type: 
  Country: US (occurrence: US)
  Receive Date: 20120921
  Receipt Date: 20121119
  Transmission Date: 20130627
  Serious: Yes (Other)
  Sender: FDA-Public Use
  Company Number: US-BAYER-2012-098186

PATIENT
  Age: 40 Year
  Sex: Female
  Weight: 45.81 kg

DRUGS (5)
  1. YAZ [Suspect]
  2. YASMIN [Suspect]
  3. OCELLA [Suspect]
  4. IBUPROFEN [Concomitant]
     Dosage: UNK
  5. KEFLEX [Concomitant]
     Dosage: 500 mg, TID
     Dates: start: 20070606

REACTIONS (4)
  - Injury [None]
  - Thrombophlebitis superficial [None]
  - Deep vein thrombosis [None]
  - Pulmonary embolism [None]
